FAERS Safety Report 20370604 (Version 1)
Quarter: 2022Q1

REPORT INFORMATION
  Report Type: Spontaneous
  Country: DE (occurrence: DE)
  Receive Date: 20220124
  Receipt Date: 20220124
  Transmission Date: 20220423
  Serious: Yes (Hospitalization, Other)
  Sender: FDA-Public Use
  Company Number: None

PATIENT
  Age: 83 Year
  Sex: Male
  Weight: 80 kg

DRUGS (2)
  1. APIXABAN [Suspect]
     Active Substance: APIXABAN
     Indication: Product used for unknown indication
  2. ASPIRIN [Suspect]
     Active Substance: ASPIRIN
     Indication: Product used for unknown indication
     Dosage: 100 MG

REACTIONS (10)
  - Subdural haematoma [Unknown]
  - Hyperglycaemia [Unknown]
  - Pain [Unknown]
  - Traumatic haemorrhage [Unknown]
  - Atrial fibrillation [Unknown]
  - Anaemia [Unknown]
  - Wound [Unknown]
  - Fall [Unknown]
  - General physical health deterioration [Unknown]
  - Fracture [Unknown]
